FAERS Safety Report 9196834 (Version 3)
Quarter: 2013Q3

REPORT INFORMATION
  Report Type: Report from Study
  Country: BR (occurrence: BR)
  Receive Date: 20130328
  Receipt Date: 20130912
  Transmission Date: 20140515
  Serious: Yes (Other)
  Sender: FDA-Public Use
  Company Number: PHHY2013BR028487

PATIENT
  Sex: Female
  Weight: 72.3 kg

DRUGS (5)
  1. SANDOSTATIN LAR [Suspect]
     Indication: ACROMEGALY
     Dosage: 30 MG
     Route: 030
     Dates: start: 2003
  2. ALENIA [Concomitant]
     Dosage: UNK UKN,12/400
  3. SANDOSTATIN [Concomitant]
     Dosage: 10 MG
  4. METFORMIN [Concomitant]
     Dosage: 850 MG
  5. SYNTHROID [Concomitant]
     Dosage: UNK UKN, UNK

REACTIONS (4)
  - Nodule [Unknown]
  - Thyroglobulin increased [Unknown]
  - Diabetes mellitus [Unknown]
  - Blood cholesterol increased [Unknown]
